FAERS Safety Report 5880078 (Version 1)
Quarter: 2020Q3

REPORT INFORMATION
  Report Type: Spontaneous
  Country: AU (occurrence: None)
  Receive Date: 20050909
  Receipt Date: 20050909
  Transmission Date: 20201104
  Serious: Yes (Hospitalization)
  Sender: FDA-Public Use
  Company Number: 2005-132168-NL

PATIENT
  Age: 19 Year
  Sex: Female

DRUGS (8)
  1. ROCURONIUM BROMIDE. [Suspect]
     Active Substance: ROCURONIUM BROMIDE
     Indication: SENSORY DISTURBANCE
     Dosage: 20 MG ONCE INTRAVENOUS (NOS)
     Route: 042
     Dates: start: 20031114, end: 20031114
  2. FENTANYL. [Suspect]
     Active Substance: FENTANYL
     Indication: SENSORY DISTURBANCE
     Dosage: 75 UG ONCE
     Dates: start: 20031114, end: 20031114
  3. PARECOXIB SODIUM. [Suspect]
     Active Substance: PARECOXIB SODIUM
     Indication: SENSORY DISTURBANCE
     Dosage: 40 MG ONCE INTRAVENOUS (NOS)
     Route: 042
     Dates: start: 20031114, end: 20031114
  4. PROPOFOL. [Suspect]
     Active Substance: PROPOFOL
     Indication: SENSORY DISTURBANCE
     Dosage: 130 MG ONCE INTRAVENOUS (NOS)
     Route: 042
     Dates: start: 20031114, end: 20031114
  5. METHYLPREDNISOLONE. [Suspect]
     Active Substance: METHYLPREDNISOLONE
     Indication: SENSORY DISTURBANCE
     Dosage: 125 MG ONCE INTRAVENOUS (NOS)
     Route: 042
     Dates: start: 20031114, end: 20031114
  6. MIDAZOLAM HYDROCHLORIDE. [Suspect]
     Active Substance: MIDAZOLAM HYDROCHLORIDE
     Indication: SENSORY DISTURBANCE
     Dosage: 2 MG ONCE
  7. AMPICILLIN [Suspect]
     Active Substance: AMPICILLIN
     Indication: SENSORY DISTURBANCE
     Dosage: 1 G ONCE
     Dates: start: 20031114, end: 20031114
  8. SEVOFLURANE. [Suspect]
     Active Substance: SEVOFLURANE
     Indication: SENSORY DISTURBANCE
     Dosage: RESPIRATORY (INHALATION)
     Route: 055
     Dates: start: 20031114, end: 20031114

REACTIONS (1)
  - Dyskinesia [None]

NARRATIVE: CASE EVENT DATE: 20031114
